FAERS Safety Report 4267230-3 (Version None)
Quarter: 2004Q1

REPORT INFORMATION
  Report Type: 
  Country: None (occurrence: None)
  Receive Date: 20040108
  Receipt Date: 20040108
  Transmission Date: 20041129
  Serious: Yes (Hospitalization)
  Sender: FDA-Public Use
  Company Number: None

PATIENT
  Age: 34 Year
  Sex: Female
  Weight: 57.7 kg

DRUGS (11)
  1. AMILORIDE HCL [Suspect]
     Indication: CYSTIC FIBROSIS
     Dates: start: 20031209
  2. SODIUM CHLORIDE [Suspect]
  3. ALBUTEROL [Concomitant]
  4. GUAIFENESIN [Concomitant]
  5. ADVAIR DISKUS 250/50 [Concomitant]
  6. FLONASE [Concomitant]
  7. PULMOZYME [Concomitant]
  8. ADEK VITAMIN [Concomitant]
  9. PREVACID [Concomitant]
  10. ZOLOFT [Concomitant]
  11. ULTRACE [Concomitant]

REACTIONS (5)
  - CHILLS [None]
  - DEHYDRATION [None]
  - HEADACHE [None]
  - PYREXIA [None]
  - VIRAL INFECTION [None]
